FAERS Safety Report 24111676 (Version 1)
Quarter: 2024Q3

REPORT INFORMATION
  Report Type: Report from Study
  Country: CA (occurrence: None)
  Receive Date: 20240718
  Receipt Date: 20240718
  Transmission Date: 20241016
  Serious: Yes (Hospitalization, Other)
  Sender: ASTRAZENECA
  Company Number: 2024A159366

PATIENT
  Sex: Female

DRUGS (4)
  1. FASENRA [Suspect]
     Active Substance: BENRALIZUMAB
     Indication: Asthma
     Route: 058
     Dates: start: 20191126
  2. ACTECTURA BREEZHALER [Concomitant]
     Dosage: 160 MCG 1INH OD
     Dates: start: 20240401
  3. VENTOLIN [Concomitant]
     Active Substance: ALBUTEROL SULFATE
     Dosage: AS REQUIRED
  4. SINGULAIR [Concomitant]
     Active Substance: MONTELUKAST SODIUM
     Dosage: 10MG DIE

REACTIONS (4)
  - Vasculitis [Unknown]
  - Transient ischaemic attack [Unknown]
  - Ischaemic stroke [Unknown]
  - Vascular occlusion [Unknown]
